FAERS Safety Report 8917322 (Version 3)
Quarter: 2014Q1

REPORT INFORMATION
  Report Type: Spontaneous
  Country: US (occurrence: US)
  Receive Date: 20121120
  Receipt Date: 20140314
  Transmission Date: 20141002
  Serious: Yes (Other)
  Sender: FDA-Public Use
  Company Number: US-BAYER-2012-120772

PATIENT
  Age: 34 Year
  Sex: Female
  Weight: 81.63 kg

DRUGS (8)
  1. YAZ [Suspect]
     Dosage: UNK
     Dates: start: 201110
  2. YASMIN [Suspect]
     Dosage: UNK
     Dates: start: 201110
  3. CYCLOBENZAPRINE [Concomitant]
     Dosage: 5 MG, UNK
  4. SERTRALINE [Concomitant]
     Dosage: 50 MG, UNK
     Dates: start: 20110915
  5. PREDNISONE [Concomitant]
     Dosage: 10 MG, UNK
     Dates: start: 20110915
  6. CEFUROXIME [Concomitant]
     Dosage: 500 MG, UNK
     Dates: start: 20110915
  7. PROTONIX [Concomitant]
     Dosage: 40 MG 2 [TIMES] [PER] DAY
     Dates: start: 20111007
  8. ZOLOFT [Concomitant]
     Dosage: 50 MG 1 [TIMES] [PER] DAY

REACTIONS (10)
  - Cholecystectomy [None]
  - Biliary dyskinesia [None]
  - Cholecystitis chronic [None]
  - Pain [None]
  - Injury [None]
  - General physical health deterioration [None]
  - Emotional distress [None]
  - Anxiety [None]
  - Pain [None]
  - Anhedonia [None]
